FAERS Safety Report 7586597-1 (Version None)
Quarter: 2011Q3

REPORT INFORMATION
  Report Type: 
  Country: None (occurrence: None)
  Receive Date: 20110701
  Receipt Date: 20110623
  Transmission Date: 20111222
  Serious: Yes (Other)
  Sender: FDA-Public Use
  Company Number: US-US-EMD SERONO, INC.-7067319

PATIENT
  Sex: Male

DRUGS (3)
  1. REBIF [Suspect]
     Indication: MULTIPLE SCLEROSIS
     Route: 058
     Dates: start: 20101217, end: 20110401
  2. REBIF [Suspect]
     Route: 058
     Dates: start: 20110516
  3. IBUPROFEN [Concomitant]
     Indication: PREMEDICATION

REACTIONS (2)
  - PROSTATOMEGALY [None]
  - MULTIPLE SCLEROSIS RELAPSE [None]
